FAERS Safety Report 22749221 (Version 12)
Quarter: 2025Q4

REPORT INFORMATION
  Report Type: Spontaneous
  Country: US (occurrence: US)
  Receive Date: 20230725
  Receipt Date: 20251008
  Transmission Date: 20260118
  Serious: Yes (Hospitalization)
  Sender: PFIZER
  Company Number: US-PFIZER INC-202101036168

PATIENT
  Age: 68 Year
  Sex: Female
  Weight: 74.83 kg

DRUGS (7)
  1. BOSULIF [Suspect]
     Active Substance: BOSUTINIB MONOHYDRATE
     Indication: Acute myeloid leukaemia
     Dosage: 100 MG, 1X/DAY
     Route: 048
     Dates: start: 2011
  2. BOSULIF [Suspect]
     Active Substance: BOSUTINIB MONOHYDRATE
     Indication: Chronic myeloid leukaemia
     Dosage: 300 MG
  3. BOSULIF [Suspect]
     Active Substance: BOSUTINIB MONOHYDRATE
     Dosage: 100 MG, 1X/DAY
     Route: 048
  4. BOSULIF [Suspect]
     Active Substance: BOSUTINIB MONOHYDRATE
     Dosage: 100 MG, 1X/DAY (TAKE ONE TABLET AT BEDTIME)
     Route: 048
  5. BOSULIF [Suspect]
     Active Substance: BOSUTINIB MONOHYDRATE
     Dosage: 100 MG, 1X/DAY(EVERY NIGHT AT BEDTIME)
     Route: 048
  6. PREDNISONE [Concomitant]
     Active Substance: PREDNISONE
     Indication: Parkinson^s disease
     Dosage: 5 MILLIGRAMS IN THE MORNING, TWO AN A HALF IN THE EVENING
  7. OMEPRAZOLE [Concomitant]
     Active Substance: OMEPRAZOLE
     Dosage: UNK

REACTIONS (8)
  - Fall [Unknown]
  - Muscle injury [Unknown]
  - Pain in extremity [Unknown]
  - Gait disturbance [Unknown]
  - Blood glucose decreased [Unknown]
  - Headache [Unknown]
  - Product dose omission in error [Unknown]
  - Off label use [Unknown]

NARRATIVE: CASE EVENT DATE: 20241201
